FAERS Safety Report 9115799 (Version 2)
Quarter: 2013Q1

REPORT INFORMATION
  Report Type: Spontaneous
  Country: CO (occurrence: CO)
  Receive Date: 20130224
  Receipt Date: 20130301
  Transmission Date: 20140127
  Serious: Yes (Death, Life-Threatening, Hospitalization, Other)
  Sender: FDA-Public Use
  Company Number: CO-VERTEX PHARMACEUTICALS INC.-2013-002564

PATIENT
  Age: 57 Year
  Sex: Male

DRUGS (1)
  1. INCIVO [Suspect]
     Indication: HEPATITIS C
     Route: 048
     Dates: start: 2012

REACTIONS (4)
  - Renal failure [Fatal]
  - Systemic inflammatory response syndrome [Unknown]
  - Fatigue [Unknown]
  - Anaemia [Fatal]
